FAERS Safety Report 21340991 (Version 4)
Quarter: 2023Q2

REPORT INFORMATION
  Report Type: Report from Study
  Country: US (occurrence: US)
  Receive Date: 20220916
  Receipt Date: 20230403
  Transmission Date: 20230722
  Serious: Yes (Hospitalization)
  Sender: FDA-Public Use
  Company Number: US-GBT-016499

PATIENT
  Age: 16 Year
  Sex: Female

DRUGS (21)
  1. OXBRYTA [Suspect]
     Active Substance: VOXELOTOR
     Indication: Sickle cell disease
     Dates: start: 20210820
  2. VITAMIN D3 [Concomitant]
     Active Substance: CHOLECALCIFEROL
     Dosage: DOSAGE: 2000 U
     Route: 048
     Dates: start: 20191219
  3. ACETAMINOPHEN\HYDROCODONE [Concomitant]
     Active Substance: ACETAMINOPHEN\HYDROCODONE
     Indication: Sickle cell disease
     Dosage: 5-325 MG TABLET
     Route: 048
     Dates: start: 20180816
  4. NARCAN [Concomitant]
     Active Substance: NALOXONE HYDROCHLORIDE
     Indication: Drug use disorder
     Dosage: TIME INTERVAL: AS NECESSARY
     Route: 045
     Dates: start: 20210803
  5. pediatric multivitamin [Concomitant]
     Dates: start: 20220120
  6. CYPROHEPTADINE [Concomitant]
     Active Substance: CYPROHEPTADINE
     Route: 048
     Dates: start: 20190215
  7. POLYETHYLENE GLYCOL [Concomitant]
     Active Substance: POLYETHYLENE GLYCOL
     Route: 048
     Dates: start: 20170418
  8. ONDANSETRON [Concomitant]
     Active Substance: ONDANSETRON
     Indication: Nausea
     Route: 048
     Dates: start: 20190429
  9. oxycodone IR (roxicodone) [Concomitant]
     Indication: Sickle cell disease
     Route: 048
     Dates: start: 20201117
  10. CITALOPRAM [Concomitant]
     Active Substance: CITALOPRAM HYDROBROMIDE
     Route: 048
     Dates: start: 20200623
  11. MELATONIN [Concomitant]
     Active Substance: MELATONIN
     Indication: Insomnia
     Route: 048
     Dates: start: 20210520
  12. MS CONTIN [Concomitant]
     Active Substance: MORPHINE SULFATE
     Indication: Sickle cell disease
     Route: 048
     Dates: start: 20190311
  13. Denta [Concomitant]
     Dates: start: 20201229
  14. HYDROXYZINE [Concomitant]
     Active Substance: HYDROXYZINE HYDROCHLORIDE
     Indication: Pruritus
     Route: 048
     Dates: start: 20191218
  15. FOLVITE [Concomitant]
     Active Substance: FOLIC ACID
     Indication: Sickle cell disease
     Route: 048
     Dates: start: 20120414
  16. CONCERTA [Concomitant]
     Active Substance: METHYLPHENIDATE HYDROCHLORIDE
     Dosage: 54 MG 24 HR EXTENDED RELEASE TABLET
     Route: 048
     Dates: start: 20190716
  17. CYCLOBENZAPRINE [Concomitant]
     Active Substance: CYCLOBENZAPRINE
     Indication: Sickle cell disease
     Dosage: TIME INTERVAL: 0.33333333 DAYS
     Route: 048
     Dates: start: 20200809
  18. senna docusate [Concomitant]
     Dosage: 8.6-50 MG PER TABLET
     Dates: start: 20150824, end: 20220127
  19. FAMOTIDINE [Concomitant]
     Active Substance: FAMOTIDINE
     Indication: Gastrooesophageal reflux disease
     Route: 048
     Dates: start: 20210119, end: 20220127
  20. IBUPROFEN [Concomitant]
     Active Substance: IBUPROFEN
     Indication: Sickle cell disease
     Route: 048
     Dates: start: 20210520
  21. hydroxyurea (hydrea) [Concomitant]
     Indication: Sickle cell disease
     Dosage: ALTERNATE 500/1000 MG
     Route: 048
     Dates: start: 20200821, end: 20220227

REACTIONS (2)
  - Sickle cell anaemia with crisis [Recovered/Resolved]
  - Seizure [Recovered/Resolved]

NARRATIVE: CASE EVENT DATE: 20220119
